FAERS Safety Report 20553598 (Version 1)
Quarter: 2022Q1

REPORT INFORMATION
  Report Type: Spontaneous
  Country: US (occurrence: None)
  Receive Date: 20210520
  Receipt Date: 20210520
  Transmission Date: 20220423
  Serious: Yes (Other)
  Sender: FDA-Public Use
  Company Number: None

PATIENT
  Age: 70 Year
  Sex: Female
  Weight: 89.1 kg

DRUGS (9)
  1. LABETALOL [Suspect]
     Active Substance: LABETALOL\LABETALOL HYDROCHLORIDE
     Indication: Hypertension
     Dosage: OTHER QUANTITY : 2 TABLET(S);?FREQUENCY : TWICE A DAY;?
     Route: 048
     Dates: start: 20190603, end: 20210501
  2. LOSARTAN [Concomitant]
     Active Substance: LOSARTAN
  3. CHLORTHALIDONE [Concomitant]
     Active Substance: CHLORTHALIDONE
  4. SYNTHROID [Concomitant]
     Active Substance: LEVOTHYROXINE SODIUM
  5. folnase [Concomitant]
  6. MILK OF MAGNESIA [Concomitant]
     Active Substance: MAGNESIUM HYDROXIDE
  7. VITAMINS [Concomitant]
     Active Substance: VITAMINS
  8. can drayton and glucosamine [Concomitant]
  9. VITAMIN B12 [Concomitant]
     Active Substance: CYANOCOBALAMIN

REACTIONS (5)
  - Hand deformity [None]
  - Cartilage injury [None]
  - Gait disturbance [None]
  - Arthralgia [None]
  - Joint injury [None]

NARRATIVE: CASE EVENT DATE: 20200602
